FAERS Safety Report 26059690 (Version 1)
Quarter: 2025Q4

REPORT INFORMATION
  Report Type: Report from Study
  Country: US (occurrence: US)
  Receive Date: 20251118
  Receipt Date: 20251118
  Transmission Date: 20260117
  Serious: Yes (Other)
  Sender: ABBVIE
  Company Number: US-ABBVIE-6548584

PATIENT
  Age: 64 Year
  Sex: Female

DRUGS (1)
  1. SKYRIZI [Suspect]
     Active Substance: RISANKIZUMAB-RZAA
     Indication: Psoriasis
     Route: 058
     Dates: start: 20250507

REACTIONS (4)
  - Rotator cuff repair [Unknown]
  - Weight decreased [Recovered/Resolved]
  - Rash macular [Recovering/Resolving]
  - Adverse reaction [Recovered/Resolved]

NARRATIVE: CASE EVENT DATE: 20250101
